FAERS Safety Report 12970328 (Version 3)
Quarter: 2017Q1

REPORT INFORMATION
  Report Type: Spontaneous
  Country: US (occurrence: US)
  Receive Date: 20161123
  Receipt Date: 20170328
  Transmission Date: 20170428
  Serious: Yes (Disabling, Other)
  Sender: FDA-Public Use
  Company Number: US-B.I. PHARMACEUTICALS,INC./RIDGEFIELD-2016-BI-080300

PATIENT
  Age: 60 Year
  Sex: Female
  Weight: 39.01 kg

DRUGS (19)
  1. BUDESONIDE. [Concomitant]
     Active Substance: BUDESONIDE
     Indication: PRODUCT USED FOR UNKNOWN INDICATION
     Dosage: STRENGTH: 0.5 MG/2 ML 1 UNIT DOSE VIA NEBULIZER
     Route: 055
     Dates: start: 20151116
  2. ALBUTEROL CFC FREE [Concomitant]
     Indication: PRODUCT USED FOR UNKNOWN INDICATION
     Route: 055
     Dates: start: 20141217
  3. NYSTATIN. [Concomitant]
     Active Substance: NYSTATIN
     Indication: ORAL CANDIDIASIS
     Dosage: SWISH AND SWALLOW 4 TIMES DAILY
     Route: 048
  4. VENTOLIN HFA CFC FREE [Concomitant]
     Indication: PRODUCT USED FOR UNKNOWN INDICATION
     Dosage: INHALE 2 PUFFS FOR TIMES A DAY
     Route: 055
     Dates: start: 20150811
  5. EPIPEN [Concomitant]
     Active Substance: EPINEPHRINE
     Indication: FOOD ALLERGY
     Dosage: 0.3MG/0.3ML
     Route: 030
     Dates: start: 20160401
  6. EPIPEN [Concomitant]
     Active Substance: EPINEPHRINE
     Indication: ESSENTIAL TREMOR
  7. PROMETHZINE HCL [Concomitant]
     Indication: ESSENTIAL TREMOR
  8. IPRATROPIUM BROMIDE. [Concomitant]
     Active Substance: IPRATROPIUM BROMIDE
     Indication: CHRONIC OBSTRUCTIVE PULMONARY DISEASE
     Dosage: 1 UNIT DOSE IN NEBULIZER 4 TIMES DAILY
  9. LORAZEPAM. [Concomitant]
     Active Substance: LORAZEPAM
     Indication: PRODUCT USED FOR UNKNOWN INDICATION
     Route: 048
  10. PRIMIDONE. [Concomitant]
     Active Substance: PRIMIDONE
     Indication: ESSENTIAL TREMOR
     Route: 048
  11. SPIRIVA [Suspect]
     Active Substance: TIOTROPIUM BROMIDE MONOHYDRATE
     Indication: CHRONIC OBSTRUCTIVE PULMONARY DISEASE
     Route: 055
     Dates: start: 2008
  12. PROMETHZINE HCL [Concomitant]
     Indication: NAUSEA
     Dosage: DAILY DOSE: 25 MG 1 TABLET EVERY 6 HOURS IF NEEDED
     Route: 048
  13. FLUTICASONE PROPIONATE. [Concomitant]
     Active Substance: FLUTICASONE PROPIONATE
     Indication: WHEEZING
     Dosage: 1 SPRAY IN EACH NOSTRIL ONCE DAIY
     Route: 050
  14. SPIRIVA [Suspect]
     Active Substance: TIOTROPIUM BROMIDE MONOHYDRATE
     Route: 055
     Dates: start: 201506
  15. OXYCODONE AND ACETAMINOPHEN [Concomitant]
     Active Substance: ACETAMINOPHEN\OXYCODONE HYDROCHLORIDE
     Indication: PAIN
     Dosage: STRENGHT: 325 MG - 10MG
     Route: 048
     Dates: start: 20150811, end: 20151116
  16. HALOBETASOL TOPICAL [Concomitant]
     Indication: PRODUCT USED FOR UNKNOWN INDICATION
     Dosage: STRENGTH: 0.05 PERCENT
     Route: 061
     Dates: start: 20150421
  17. SPIRIVA [Suspect]
     Active Substance: TIOTROPIUM BROMIDE MONOHYDRATE
     Indication: EMPHYSEMA
     Route: 055
     Dates: start: 20150630
  18. ALBUTEROL. [Concomitant]
     Active Substance: ALBUTEROL
     Indication: CHRONIC OBSTRUCTIVE PULMONARY DISEASE
     Dosage: STRENGTH: 2.5 MG/3ML (0.083 PERCENT) 1 VIAL IN NEBULIZER EVERY 6 HOURS AS NEEDED
     Route: 055
     Dates: start: 20151116
  19. ATIVAN [Concomitant]
     Active Substance: LORAZEPAM
     Indication: PRODUCT USED FOR UNKNOWN INDICATION
     Route: 048

REACTIONS (4)
  - Lung neoplasm malignant [Not Recovered/Not Resolved]
  - Breast cancer recurrent [Not Recovered/Not Resolved]
  - Lung neoplasm malignant [Recovered/Resolved with Sequelae]
  - Brain neoplasm benign [Not Recovered/Not Resolved]

NARRATIVE: CASE EVENT DATE: 201411
